FAERS Safety Report 4719962-8 (Version None)
Quarter: 2005Q3

REPORT INFORMATION
  Report Type: 
  Country: None (occurrence: None)
  Receive Date: 20050721
  Receipt Date: 20050214
  Transmission Date: 20060218
  Serious: No
  Sender: FDA-Public Use
  Company Number: US-GLAXOSMITHKLINE-A0545500A

PATIENT
  Age: 75 Year
  Sex: Male

DRUGS (11)
  1. AVANDIA [Suspect]
     Dosage: 2MG PER DAY
     Route: 048
  2. TOPROL-XL [Concomitant]
  3. ASPIRIN [Concomitant]
  4. COZAAR [Concomitant]
  5. PLAVIX [Concomitant]
  6. GLYBURIDE [Concomitant]
  7. ZOCOR [Concomitant]
  8. PROTONIX [Concomitant]
  9. CENTRUM [Concomitant]
  10. HYZAAR [Concomitant]
  11. VICODIN [Concomitant]

REACTIONS (3)
  - HYPERTENSION [None]
  - MYALGIA [None]
  - NAUSEA [None]
